FAERS Safety Report 8347023-8 (Version None)
Quarter: 2012Q2

REPORT INFORMATION
  Report Type: 
  Country: None (occurrence: None)
  Receive Date: 20120509
  Receipt Date: 20120424
  Transmission Date: 20120825
  Serious: Yes (Hospitalization)
  Sender: FDA-Public Use
  Company Number: PHHY2012IL039076

PATIENT
  Age: 55 Year
  Sex: Male

DRUGS (5)
  1. DIOVAN [Suspect]
     Indication: HYPERTENSION
     Route: 048
  2. EXFORGE [Suspect]
     Indication: HYPERTENSION
     Dosage: 1 DF, UNK
     Route: 048
  3. RASILEZ [Suspect]
     Indication: HYPERTENSION
     Dosage: 300 MG, UNK
     Route: 048
  4. CARDILOC [Concomitant]
     Indication: HYPERTENSION
  5. CARDEX [Concomitant]
     Indication: HYPERTENSION

REACTIONS (1)
  - CARDIAC FAILURE [None]
